FAERS Safety Report 25189350 (Version 9)
Quarter: 2025Q3

REPORT INFORMATION
  Report Type: Report from Study
  Country: JP (occurrence: JP)
  Receive Date: 20250411
  Receipt Date: 20250819
  Transmission Date: 20251020
  Serious: Yes (Other)
  Sender: JOHNSON AND JOHNSON
  Company Number: JP-JNJFOC-20250201522

PATIENT
  Age: 67 Year
  Sex: Male

DRUGS (2)
  1. ERLEADA [Suspect]
     Active Substance: APALUTAMIDE
     Indication: Prostate cancer metastatic
     Route: 048
     Dates: start: 20250122, end: 202501
  2. ERLEADA [Suspect]
     Active Substance: APALUTAMIDE
     Route: 048
     Dates: start: 202501

REACTIONS (14)
  - Depressed level of consciousness [Not Recovered/Not Resolved]
  - Physical deconditioning [Not Recovered/Not Resolved]
  - Malaise [Not Recovered/Not Resolved]
  - Hypogeusia [Not Recovered/Not Resolved]
  - Pruritus [Not Recovered/Not Resolved]
  - Palpitations [Recovered/Resolved]
  - Hypoglycaemia [Not Recovered/Not Resolved]
  - Miliaria [Not Recovered/Not Resolved]
  - Middle insomnia [Not Recovered/Not Resolved]
  - Prostatic specific antigen abnormal [Recovering/Resolving]
  - Injection site pain [Not Recovered/Not Resolved]
  - Muscle spasms [Not Recovered/Not Resolved]
  - Adverse reaction [Not Recovered/Not Resolved]
  - Treatment noncompliance [Recovered/Resolved]

NARRATIVE: CASE EVENT DATE: 20250101
